FAERS Safety Report 8358185-0 (Version None)
Quarter: 2012Q2

REPORT INFORMATION
  Report Type: 
  Country: None (occurrence: None)
  Receive Date: 20120514
  Receipt Date: 20120509
  Transmission Date: 20120825
  Serious: Yes (Other)
  Sender: FDA-Public Use
  Company Number: US-GLAXOSMITHKLINE-A0972189A

PATIENT
  Age: 53 Year
  Sex: Female

DRUGS (7)
  1. POTASSIUM CHLORIDE [Concomitant]
  2. ADVAIR DISKUS 100/50 [Suspect]
     Indication: CHRONIC OBSTRUCTIVE PULMONARY DISEASE
     Dosage: 1PUFF TWICE PER DAY
     Route: 055
     Dates: start: 20020101
  3. LASIX [Concomitant]
  4. UNSPECIFIED INHALER [Concomitant]
  5. ROPINIROLE [Concomitant]
  6. NEBULIZER [Concomitant]
  7. WATER PILLS NOS [Concomitant]

REACTIONS (3)
  - PNEUMONIA [None]
  - DRUG INEFFECTIVE [None]
  - PRODUCT QUALITY ISSUE [None]
